FAERS Safety Report 23466346 (Version 1)
Quarter: 2024Q1

REPORT INFORMATION
  Report Type: Spontaneous
  Country: US (occurrence: US)
  Receive Date: 20240201
  Receipt Date: 20240201
  Transmission Date: 20240410
  Serious: Yes (Hospitalization)
  Sender: FDA-Public Use
  Company Number: US-MYLANLABS-2024M1010033

PATIENT
  Age: 58 Year
  Sex: Female

DRUGS (2)
  1. LIOTHYRONINE [Suspect]
     Active Substance: LIOTHYRONINE
     Indication: Ill-defined disorder
     Dosage: 5 MICROGRAM, BID (5-40 MICROGRAM)
     Route: 048
  2. LIOTHYRONINE [Suspect]
     Active Substance: LIOTHYRONINE
     Dosage: 40 MICROGRAM, BID (5-40 MICROGRAM)
     Route: 048

REACTIONS (3)
  - Stress cardiomyopathy [Recovering/Resolving]
  - Hyperthyroidism [Recovering/Resolving]
  - Off label use [Unknown]
